FAERS Safety Report 13814028 (Version 1)
Quarter: 2017Q3

REPORT INFORMATION
  Report Type: Spontaneous
  Country: US (occurrence: US)
  Receive Date: 20170728
  Receipt Date: 20170728
  Transmission Date: 20171127
  Serious: No
  Sender: FDA-Public Use
  Company Number: None

PATIENT
  Age: 70 Year
  Sex: Female

DRUGS (1)
  1. HUMIRA [Suspect]
     Active Substance: ADALIMUMAB
     Indication: RHEUMATOID ARTHRITIS
     Dosage: 40MG PEN EVERY OTEHR WEEK SQ
     Route: 058
     Dates: start: 20161116

REACTIONS (1)
  - Skin cancer [None]

NARRATIVE: CASE EVENT DATE: 20170620
